FAERS Safety Report 4717680-3 (Version None)
Quarter: 2005Q3

REPORT INFORMATION
  Report Type: 
  Country: None (occurrence: None)
  Receive Date: 20050715
  Receipt Date: 20050629
  Transmission Date: 20060218
  Serious: Yes (Other)
  Sender: FDA-Public Use
  Company Number: 8115

PATIENT
  Age: 25 Year
  Sex: Female

DRUGS (3)
  1. SEPTOCAINE [Suspect]
     Indication: JAW DISORDER
     Dosage: 1 CARPULE INJECTED
  2. SEPTOCAINE [Suspect]
     Indication: LOCAL ANAESTHESIA
     Dosage: 1 CARPULE INJECTED
  3. BENZO-JEL [Suspect]
     Indication: ANAESTHESIA
     Dosage: TOPICAL
     Route: 061

REACTIONS (1)
  - PARAESTHESIA [None]
